FAERS Safety Report 5591889-1 (Version None)
Quarter: 2007Q4

REPORT INFORMATION
  Report Type: 
  Country: None (occurrence: None)
  Receive Date: 20071212
  Receipt Date: 20070906
  Transmission Date: 20080405
  Serious: Yes (Other)
  Sender: FDA-Public Use
  Company Number: USA-2007-0029096

PATIENT
  Age: 48 Year
  Sex: Male

DRUGS (2)
  1. OXYCONTIN [Suspect]
     Indication: DRUG ABUSE
     Dosage: ORAL
     Route: 048
  2. MARIJUANA (CANNABIS) [Suspect]
     Indication: DRUG ABUSER

REACTIONS (6)
  - EUPHORIC MOOD [None]
  - FEELING ABNORMAL [None]
  - IMPAIRED DRIVING ABILITY [None]
  - ROAD TRAFFIC ACCIDENT [None]
  - SUBSTANCE ABUSE [None]
  - VISUAL DISTURBANCE [None]
